FAERS Safety Report 7071445-9 (Version None)
Quarter: 2010Q4

REPORT INFORMATION
  Report Type: 
  Country: None (occurrence: None)
  Receive Date: 20101029
  Receipt Date: 20090902
  Transmission Date: 20110411
  Serious: No
  Sender: FDA-Public Use
  Company Number: A0805679A

PATIENT
  Age: 85 Year
  Sex: Male

DRUGS (3)
  1. ADVAIR DISKUS 100/50 [Suspect]
     Indication: CHRONIC OBSTRUCTIVE PULMONARY DISEASE
     Dosage: 1PUFF PER DAY
     Route: 055
     Dates: start: 20090801
  2. SPIRIVA [Concomitant]
  3. BLOOD PRESSURE MEDICATION [Concomitant]

REACTIONS (4)
  - EYE PRURITUS [None]
  - NASAL CONGESTION [None]
  - NASOPHARYNGITIS [None]
  - UPPER-AIRWAY COUGH SYNDROME [None]
